FAERS Safety Report 20701898 (Version 1)
Quarter: 2022Q2

REPORT INFORMATION
  Report Type: Spontaneous
  Country: None (occurrence: US)
  Receive Date: 20220412
  Receipt Date: 20220412
  Transmission Date: 20220721
  Serious: No
  Sender: FDA-Public Use
  Company Number: US-Breckenridge Pharmaceutical, Inc.-2127647

PATIENT
  Age: 25 Year
  Sex: Male
  Weight: 95.455 kg

DRUGS (5)
  1. DULOXETINE [Suspect]
     Active Substance: DULOXETINE
     Indication: Depression
     Route: 048
  2. PROPRANOLOL [Concomitant]
     Active Substance: PROPRANOLOL HYDROCHLORIDE
  3. NUVIGIL [Concomitant]
     Active Substance: ARMODAFINIL
  4. OMEPRAZOLE [Concomitant]
     Active Substance: OMEPRAZOLE
  5. FLEXERIL [Concomitant]
     Active Substance: CYCLOBENZAPRINE HYDROCHLORIDE

REACTIONS (9)
  - Therapeutic product ineffective [Unknown]
  - Dizziness [Unknown]
  - Disorientation [Unknown]
  - Hypersomnia [Unknown]
  - Feeling abnormal [Unknown]
  - Nausea [Unknown]
  - Visual impairment [None]
  - Vision blurred [Unknown]
  - Head discomfort [Unknown]
